FAERS Safety Report 25134997 (Version 2)
Quarter: 2025Q2

REPORT INFORMATION
  Report Type: Spontaneous
  Country: NL (occurrence: NL)
  Receive Date: 20250328
  Receipt Date: 20250416
  Transmission Date: 20250717
  Serious: Yes (Death, Hospitalization, Other)
  Sender: ALEXION PHARMACEUTICALS
  Company Number: NL-ASTRAZENECA-202503GLO022221NL

PATIENT
  Age: 23 Year

DRUGS (5)
  1. SEROQUEL [Interacting]
     Active Substance: QUETIAPINE FUMARATE
     Indication: Product used for unknown indication
     Route: 065
  2. ALCOHOL [Interacting]
     Active Substance: ALCOHOL
     Indication: Product used for unknown indication
     Route: 065
  3. COCAINE [Interacting]
     Active Substance: COCAINE
     Indication: Product used for unknown indication
     Route: 065
  4. OXYCODONE [Interacting]
     Active Substance: OXYCODONE
     Indication: Product used for unknown indication
     Route: 065
  5. GRAPEFRUIT [Interacting]
     Active Substance: GRAPEFRUIT
     Indication: Product used for unknown indication
     Route: 065

REACTIONS (15)
  - Substance abuse [Unknown]
  - Food interaction [Unknown]
  - Drug interaction [Unknown]
  - Overdose [Fatal]
  - Coma [Unknown]
  - Shock [Unknown]
  - Cerebellar infarction [Fatal]
  - Toxic leukoencephalopathy [Fatal]
  - Acute kidney injury [Fatal]
  - Hyperkalaemia [Fatal]
  - Hypertransaminasaemia [Fatal]
  - Hyperlactacidaemia [Fatal]
  - Rhabdomyolysis [Fatal]
  - Multiple organ dysfunction syndrome [Fatal]
  - Hepatic failure [Unknown]
